FAERS Safety Report 8117719-1 (Version None)
Quarter: 2012Q1

REPORT INFORMATION
  Report Type: 
  Country: None (occurrence: None)
  Receive Date: 20120203
  Receipt Date: 20120203
  Transmission Date: 20120608
  Serious: No
  Sender: FDA-Public Use
  Company Number: None

PATIENT
  Sex: Male
  Weight: 83.6 kg

DRUGS (13)
  1. COMPAZINE [Concomitant]
  2. OXYCODONE HCL [Concomitant]
  3. VGEVA (DENUSUMAB) [Concomitant]
  4. COUMADIN [Concomitant]
  5. COLACE [Concomitant]
  6. INDERAL [Concomitant]
  7. SENNA [Concomitant]
  8. ONDANSETRON HCL [Concomitant]
  9. ELAVIL [Concomitant]
  10. PREDNISONE [Suspect]
     Dosage: 105 MG
     Dates: end: 20111227
  11. ATIVAN [Concomitant]
  12. TAXOTERE [Suspect]
     Dosage: 150 MG
     Dates: end: 20111207
  13. COZAAR [Concomitant]

REACTIONS (1)
  - LYMPHOCYTE COUNT DECREASED [None]
